FAERS Safety Report 11708404 (Version 1)
Quarter: 2015Q4

REPORT INFORMATION
  Report Type: Spontaneous
  Country: US (occurrence: US)
  Receive Date: 20151107
  Receipt Date: 20151107
  Transmission Date: 20160304
  Serious: Yes (Other)
  Sender: FDA-Public Use
  Company Number: US-AMGEN-USASP2015115558

PATIENT
  Age: 56 Year
  Sex: Female

DRUGS (2)
  1. PROLIA [Suspect]
     Active Substance: DENOSUMAB
     Indication: OSTEOPOROSIS POSTMENOPAUSAL
     Dosage: UNK
     Route: 065
  2. LYRICA [Concomitant]
     Active Substance: PREGABALIN
     Indication: DEPRESSION
     Dosage: UNK
     Route: 065

REACTIONS (6)
  - Dry mouth [Unknown]
  - Jaw disorder [Unknown]
  - Tooth disorder [Unknown]
  - Cerebrovascular accident [Unknown]
  - Poor personal hygiene [Unknown]
  - Hypokinesia [Unknown]

NARRATIVE: CASE EVENT DATE: 2013
